FAERS Safety Report 10384885 (Version 1)
Quarter: 2014Q3

REPORT INFORMATION
  Report Type: Spontaneous
  Country: IT (occurrence: None)
  Receive Date: 20140812
  Receipt Date: 20140812
  Transmission Date: 20150326
  Serious: Yes (Hospitalization, Congenital Anomaly)
  Sender: FDA-Public Use
  Company Number: AUR-APL-2014-08432

PATIENT
  Age: 3 Day
  Sex: Female
  Weight: 2 kg

DRUGS (1)
  1. PAROXETINE [Suspect]
     Active Substance: PAROXETINE\PAROXETINE HYDROCHLORIDE
     Indication: DEPRESSION
     Dates: end: 201310

REACTIONS (2)
  - Maternal exposure during pregnancy [None]
  - Hyponatraemia [None]

NARRATIVE: CASE EVENT DATE: 20140414
